FAERS Safety Report 15339250 (Version 1)
Quarter: 2018Q4

REPORT INFORMATION
  Report Type: Report from Study
  Country: IT (occurrence: IT)
  Receive Date: 20180831
  Receipt Date: 20180831
  Transmission Date: 20190204
  Serious: Yes (Life-Threatening)
  Sender: FDA-Public Use
  Company Number: IT-DSJP-DSE-2018-138483

PATIENT

DRUGS (7)
  1. HOMER [Suspect]
     Active Substance: AMOXICILLIN\CLAVULANATE POTASSIUM
     Indication: PRODUCT USED FOR UNKNOWN INDICATION
     Dosage: 4 DF, TOTAL
     Route: 048
     Dates: start: 20180403, end: 20180403
  2. CETIRIZINE DIHYDROCHLORIDE [Suspect]
     Active Substance: CETIRIZINE HYDROCHLORIDE
     Indication: PRODUCT USED FOR UNKNOWN INDICATION
     Dosage: 470 MG, TOTAL
     Route: 048
     Dates: start: 20180403, end: 20180403
  3. OLMESARTAN MEDOXOMIL. [Suspect]
     Active Substance: OLMESARTAN MEDOXOMIL
     Indication: PRODUCT USED FOR UNKNOWN INDICATION
     Dosage: 140 MG, TOTAL
     Route: 048
     Dates: start: 20180403, end: 20180403
  4. IBUPROFEN. [Suspect]
     Active Substance: IBUPROFEN
     Indication: PRODUCT USED FOR UNKNOWN INDICATION
     Dosage: 6000 MG, TOTAL
     Route: 048
     Dates: start: 20180403, end: 20180403
  5. EUTIROX [Suspect]
     Active Substance: LEVOTHYROXINE SODIUM
     Indication: PRODUCT USED FOR UNKNOWN INDICATION
     Dosage: 3.15 MG, TOTAL
     Route: 048
     Dates: start: 20180403, end: 20180403
  6. PARACETAMOL [Suspect]
     Active Substance: ACETAMINOPHEN
     Indication: PRODUCT USED FOR UNKNOWN INDICATION
     Dosage: 20 G, TOTAL
     Route: 048
     Dates: start: 20180403, end: 20180403
  7. ZERINOLFLU (PARACETAMOL+CHLORPHENAMINE+SODIUM ASCORBATE) [Suspect]
     Active Substance: ACETAMINOPHEN\ASCORBIC ACID\CHLORPHENIRAMINE MALEATE
     Indication: PRODUCT USED FOR UNKNOWN INDICATION
     Dosage: 12 DF, UNK
     Route: 048
     Dates: start: 20180403, end: 20180403

REACTIONS (3)
  - Drug abuse [Recovered/Resolved]
  - Psychomotor hyperactivity [Recovered/Resolved]
  - Coma [Recovered/Resolved]

NARRATIVE: CASE EVENT DATE: 20180403
